FAERS Safety Report 8513097-4 (Version None)
Quarter: 2012Q3

REPORT INFORMATION
  Report Type: 
  Country: None (occurrence: None)
  Receive Date: 20120716
  Receipt Date: 20120710
  Transmission Date: 20120928
  Serious: Yes (Other)
  Sender: FDA-Public Use
  Company Number: BR-PFIZER INC-2012166250

PATIENT
  Age: 74 Year
  Sex: Female
  Weight: 54 kg

DRUGS (1)
  1. LYRICA [Suspect]
     Dosage: 75 MG, 1X/DAY
     Route: 048

REACTIONS (4)
  - FEELING HOT [None]
  - PAIN IN EXTREMITY [None]
  - THYROID DISORDER [None]
  - SOMNOLENCE [None]
